FAERS Safety Report 16843932 (Version 4)
Quarter: 2019Q4

REPORT INFORMATION
  Report Type: Spontaneous
  Country: US (occurrence: US)
  Receive Date: 20190924
  Receipt Date: 20191218
  Transmission Date: 20200122
  Serious: Yes (Other)
  Sender: FDA-Public Use
  Company Number: US-BAYER-2019-169056

PATIENT
  Sex: Male

DRUGS (7)
  1. KOGENATE FS [Suspect]
     Active Substance: ANTIHEMOPHILIC FACTOR, HUMAN RECOMBINANT
     Indication: HAEMOPHILIA
     Dosage: 6000 U TO TREAT HAND MUSCLE BLEED
  2. KOGENATE FS [Suspect]
     Active Substance: ANTIHEMOPHILIC FACTOR, HUMAN RECOMBINANT
     Indication: HAEMOPHILIA
     Dosage: 3000 U, EVERY 12-24H PRN (FOR BLEEDING)
     Route: 042
  3. KOGENATE FS [Suspect]
     Active Substance: ANTIHEMOPHILIC FACTOR, HUMAN RECOMBINANT
     Indication: HAEMORRHAGE
     Dosage: 6000 U, PRN  (FOR TRAUMA OR DENTAL PROCEDURE)
     Route: 042
     Dates: start: 20130329
  4. KOGENATE FS [Suspect]
     Active Substance: ANTIHEMOPHILIC FACTOR, HUMAN RECOMBINANT
     Indication: HAEMOPHILIA
     Dosage: 3000 U, EVERY 12-24H PRN (FOR BLEEDING)
     Route: 042
  5. KOGENATE FS [Suspect]
     Active Substance: ANTIHEMOPHILIC FACTOR, HUMAN RECOMBINANT
     Indication: HAEMARTHROSIS
     Dosage: 2 DF (FOR WRIST BLEED)
  6. KOGENATE FS [Suspect]
     Active Substance: ANTIHEMOPHILIC FACTOR, HUMAN RECOMBINANT
     Indication: HAEMOPHILIA
     Dosage: 3000 U, EVERY 12-24H PRN (FOR BLEEDING)
     Route: 042
     Dates: start: 20130329
  7. KOGENATE FS [Suspect]
     Active Substance: ANTIHEMOPHILIC FACTOR, HUMAN RECOMBINANT
     Indication: HAEMOPHILIA
     Dosage: 1 DF (FOR EAR BLEED)

REACTIONS (4)
  - Haemarthrosis [None]
  - Haemarthrosis [Unknown]
  - Ear haemorrhage [None]
  - Muscle haemorrhage [Not Recovered/Not Resolved]
